FAERS Safety Report 20316987 (Version 1)
Quarter: 2022Q1

REPORT INFORMATION
  Report Type: Spontaneous
  Country: US (occurrence: None)
  Receive Date: 20220110
  Receipt Date: 20220110
  Transmission Date: 20220424
  Serious: No
  Sender: FDA-Public Use
  Company Number: 2021A886813

PATIENT
  Age: 851 Month
  Sex: Male
  Weight: 65.8 kg

DRUGS (3)
  1. BUDESONIDE\FORMOTEROL\GLYCOPYRRONIUM [Suspect]
     Active Substance: BUDESONIDE\FORMOTEROL\GLYCOPYRRONIUM
     Indication: Chronic obstructive pulmonary disease
     Dosage: 160/9/4.8MCG 2 PUFFS TWICE DAILY
     Route: 055
     Dates: start: 2021
  2. FLOMAX [Concomitant]
     Active Substance: TAMSULOSIN HYDROCHLORIDE
  3. AMLODIPINE BESYLATE [Concomitant]
     Active Substance: AMLODIPINE BESYLATE

REACTIONS (10)
  - Malaise [Recovered/Resolved]
  - Ocular discomfort [Not Recovered/Not Resolved]
  - Blood pressure fluctuation [Recovering/Resolving]
  - Feeling abnormal [Recovering/Resolving]
  - Oxygen consumption decreased [Recovered/Resolved]
  - Hypertension [Unknown]
  - Device use issue [Recovered/Resolved]
  - Wrong technique in device usage process [Unknown]
  - Device delivery system issue [Recovered/Resolved]
  - Device ineffective [Recovered/Resolved]

NARRATIVE: CASE EVENT DATE: 20211201
